FAERS Safety Report 4968805-6 (Version None)
Quarter: 2006Q2

REPORT INFORMATION
  Report Type: 
  Country: None (occurrence: None)
  Receive Date: 20060411
  Receipt Date: 20060222
  Transmission Date: 20061013
  Serious: Yes (Other)
  Sender: FDA-Public Use
  Company Number: NZ-GLAXOSMITHKLINE-B0414311A

PATIENT
  Age: 78 Year
  Sex: Male

DRUGS (6)
  1. ZYBAN [Suspect]
     Dosage: 150MG TWICE PER DAY
     Route: 048
  2. FLIXOTIDE [Concomitant]
  3. SEREVENT [Concomitant]
  4. COMBIVENT [Concomitant]
  5. ACCUPRIL [Concomitant]
  6. HYPNOVEL [Concomitant]

REACTIONS (3)
  - DYSGRAPHIA [None]
  - INSOMNIA [None]
  - TREMOR [None]
